FAERS Safety Report 12641672 (Version 3)
Quarter: 2016Q3

REPORT INFORMATION
  Report Type: Spontaneous
  Country: DE (occurrence: DE)
  Receive Date: 20160810
  Receipt Date: 20160914
  Transmission Date: 20161109
  Serious: Yes (Other)
  Sender: FDA-Public Use
  Company Number: DE-PFIZER INC-2016380260

PATIENT
  Age: 28 Year

DRUGS (3)
  1. PACLITAXEL. [Suspect]
     Active Substance: PACLITAXEL
     Indication: EXTRAGONADAL PRIMARY GERM CELL TUMOUR
     Dosage: FOURTH-LINE TREATMENT (2 ? GOP)
  2. GEMCITABINE HYDROCHLORIDE. [Suspect]
     Active Substance: GEMCITABINE HYDROCHLORIDE
     Indication: EXTRAGONADAL PRIMARY GERM CELL TUMOUR
     Dosage: FOURTH-LINE TREATMENT (2 ? GOP)
  3. OXALIPLATIN. [Suspect]
     Active Substance: OXALIPLATIN
     Indication: EXTRAGONADAL PRIMARY GERM CELL TUMOUR
     Dosage: FOURTH-LINE TREATMENT (2 ? GOP)

REACTIONS (2)
  - Pancytopenia [Unknown]
  - Infection [Unknown]
